FAERS Safety Report 5871218-6 (Version None)
Quarter: 2008Q3

REPORT INFORMATION
  Report Type: 
  Country: None (occurrence: None)
  Receive Date: 20080829
  Receipt Date: 20071105
  Transmission Date: 20090109
  Serious: Yes (Hospitalization)
  Sender: FDA-Public Use
  Company Number: 2007-01068FE

PATIENT
  Age: 20 Year
  Sex: Male

DRUGS (3)
  1. GONADORELIN INJ [Suspect]
     Indication: DIAGNOSTIC PROCEDURE
     Dosage: 0.1 MG ONCE
     Route: 042
  2. PROTIRELIN [Suspect]
     Indication: DIAGNOSTIC PROCEDURE
     Dosage: 0.5 MG ONCE
     Route: 042
  3. INSULIN ( ) (INSULIN) [Suspect]
     Indication: DIAGNOSTIC PROCEDURE
     Route: 042

REACTIONS (2)
  - BLINDNESS [None]
  - PITUITARY HAEMORRHAGE [None]
